FAERS Safety Report 7311596-4 (Version None)
Quarter: 2011Q1

REPORT INFORMATION
  Report Type: 
  Country: None (occurrence: None)
  Receive Date: 20110224
  Receipt Date: 20110221
  Transmission Date: 20110831
  Serious: No
  Sender: FDA-Public Use
  Company Number: JP-PFIZER INC-2011023375

PATIENT
  Age: 70 Year
  Sex: Male

DRUGS (3)
  1. CRESTOR [Suspect]
     Dosage: 2.5MG DAILY
     Route: 048
     Dates: start: 20101130, end: 20110105
  2. HALCION [Suspect]
     Dosage: 0.25 MG/DAY
     Dates: start: 20101101
  3. EXFORGE [Suspect]
     Dosage: 80MG/5MG DAILY
     Route: 048
     Dates: start: 20101130, end: 20110105

REACTIONS (5)
  - HYPOAESTHESIA [None]
  - DIZZINESS [None]
  - TREMOR [None]
  - DYSSTASIA [None]
  - GAIT DISTURBANCE [None]
